FAERS Safety Report 24242403 (Version 1)
Quarter: 2024Q3

REPORT INFORMATION
  Report Type: Spontaneous
  Country: CN (occurrence: CN)
  Receive Date: 20240823
  Receipt Date: 20240823
  Transmission Date: 20241017
  Serious: Yes (Other)
  Sender: BAXTER
  Company Number: None

PATIENT
  Age: 76 Year
  Sex: Male
  Weight: 39.7 kg

DRUGS (3)
  1. MANNITOL [Suspect]
     Active Substance: MANNITOL
     Indication: Diuretic therapy
     Dosage: 100 ML, TWICE DAILY (DOSAGE FORM: INJECTION)
     Route: 041
     Dates: start: 20240808, end: 20240808
  2. MANNITOL [Suspect]
     Active Substance: MANNITOL
     Indication: Subdural haematoma
  3. MANNITOL [Suspect]
     Active Substance: MANNITOL
     Indication: Metastases to central nervous system

REACTIONS (1)
  - Rash [Recovering/Resolving]

NARRATIVE: CASE EVENT DATE: 20240809
